FAERS Safety Report 7210826-7 (Version None)
Quarter: 2011Q1

REPORT INFORMATION
  Report Type: 
  Country: None (occurrence: None)
  Receive Date: 20110105
  Receipt Date: 20101219
  Transmission Date: 20110831
  Serious: No
  Sender: FDA-Public Use
  Company Number: US-B.I. PHARMACEUTICALS,INC./RIDGEFIELD-2010-BP-14935BP

PATIENT
  Sex: Female

DRUGS (9)
  1. AGGRENOX [Suspect]
     Indication: PROPHYLAXIS
     Route: 048
     Dates: start: 20101215, end: 20101216
  2. MULTI VIT [Concomitant]
     Indication: SUPPLEMENTATION THERAPY
  3. ASPIRIN [Concomitant]
     Dosage: 81 MG
  4. ALLOPURINOL [Concomitant]
  5. LOPID [Concomitant]
     Indication: BLOOD CHOLESTEROL INCREASED
  6. METFORMIN [Concomitant]
     Indication: DIABETES MELLITUS
  7. OMEPRAZOLE [Concomitant]
  8. SYNTHROID [Concomitant]
     Indication: HYPOTHYROIDISM
  9. IRON [Concomitant]
     Indication: SUPPLEMENTATION THERAPY

REACTIONS (3)
  - HEADACHE [None]
  - VOMITING [None]
  - ABDOMINAL PAIN UPPER [None]
